FAERS Safety Report 8231579-X (Version None)
Quarter: 2012Q1

REPORT INFORMATION
  Report Type: 
  Country: None (occurrence: None)
  Receive Date: 20120323
  Receipt Date: 20120320
  Transmission Date: 20120608
  Serious: Yes (Death)
  Sender: FDA-Public Use
  Company Number: PHEH2012US005044

PATIENT
  Sex: Female

DRUGS (2)
  1. XELODA [Concomitant]
     Indication: BREAST CANCER
     Dosage: 500 MG, BID
     Route: 048
     Dates: start: 20120215
  2. AFINITOR [Suspect]
     Indication: BREAST CANCER METASTATIC
     Dosage: 150 MG, UNK
     Route: 048
     Dates: start: 20120215

REACTIONS (3)
  - ASTHENIA [None]
  - DEATH [None]
  - PAIN [None]
